FAERS Safety Report 8817972 (Version 1)
Quarter: 2012Q4

REPORT INFORMATION
  Report Type: 
  Country: US (occurrence: US)
  Receive Date: 20121001
  Receipt Date: 20121001
  Transmission Date: 20130627
  Serious: Yes (Other)
  Sender: FDA-Public Use
  Company Number: US-ABBOTT-12P-163-0986102-00

PATIENT
  Sex: Male

DRUGS (3)
  1. HUMIRA PRE-FILLED SYRINGE [Suspect]
     Indication: CROHN^S DISEASE
  2. PREDNISONE [Suspect]
     Indication: ORGANISING PNEUMONIA
  3. UNSPECIFIED INGREDIENT [Suspect]
     Indication: ORGANISING PNEUMONIA

REACTIONS (3)
  - Organising pneumonia [Unknown]
  - General physical health deterioration [Unknown]
  - Arthralgia [Unknown]
